FAERS Safety Report 10030970 (Version 2)
Quarter: 2014Q2

REPORT INFORMATION
  Report Type: Report from Study
  Country: FR (occurrence: FR)
  Receive Date: 20140324
  Receipt Date: 20140418
  Transmission Date: 20141212
  Serious: Yes (Hospitalization)
  Sender: FDA-Public Use
  Company Number: FR-ROCHE-1369654

PATIENT
  Age: 49 Year
  Sex: Female

DRUGS (1)
  1. XOLAIR [Suspect]
     Indication: PRODUCT USED FOR UNKNOWN INDICATION
     Route: 065

REACTIONS (10)
  - Asthma [Recovered/Resolved]
  - Headache [Unknown]
  - Chest discomfort [Unknown]
  - Anxiety [Unknown]
  - Agitation [Unknown]
  - Middle insomnia [Unknown]
  - Chest pain [Unknown]
  - Cyanosis [Unknown]
  - Nail discolouration [Unknown]
  - Feeling abnormal [Unknown]
